FAERS Safety Report 4697147-1 (Version None)
Quarter: 2005Q2

REPORT INFORMATION
  Report Type: 
  Country: None (occurrence: None)
  Receive Date: 20050622
  Receipt Date: 20050314
  Transmission Date: 20051028
  Serious: Yes (Hospitalization)
  Sender: FDA-Public Use
  Company Number: US-MERCK-0503USA02922

PATIENT
  Age: 67 Year
  Sex: Male
  Weight: 114 kg

DRUGS (20)
  1. VIOXX [Suspect]
     Indication: ARTHRITIS
     Route: 048
     Dates: start: 19990101, end: 20040101
  2. VIOXX [Suspect]
     Indication: ARTHRALGIA
     Route: 048
     Dates: start: 19990101, end: 20040101
  3. PREVACID [Concomitant]
     Indication: ULCER
     Route: 065
  4. SYNTHROID [Concomitant]
     Indication: THYROID DISORDER
     Route: 065
  5. TOPROL-XL [Concomitant]
     Indication: HYPERTENSION
     Route: 048
  6. TRICOR [Concomitant]
     Indication: BLOOD TRIGLYCERIDES INCREASED
     Route: 065
  7. TRICOR [Concomitant]
     Indication: BLOOD CHOLESTEROL DECREASED
     Route: 065
  8. ZESTRIL [Concomitant]
     Indication: MYOCARDIAL INFARCTION
     Route: 065
  9. DARVOCET-N 100 [Concomitant]
     Indication: PAIN
     Route: 065
  10. CEFUROXIME [Concomitant]
     Route: 065
  11. DIOVAN [Concomitant]
     Indication: HYPERTENSION
     Route: 065
  12. LASIX [Concomitant]
     Indication: HYPERTENSION
     Route: 065
  13. LASIX [Concomitant]
     Indication: OEDEMA PERIPHERAL
     Route: 065
  14. ASPIRIN [Concomitant]
     Indication: PROPHYLAXIS
     Route: 065
  15. ASPIRIN [Concomitant]
     Indication: OSTEOARTHRITIS
     Route: 065
  16. NITROGLYCERIN [Concomitant]
     Indication: CARDIAC DISORDER
     Route: 065
  17. XANAX [Concomitant]
     Indication: DEPRESSION
     Route: 065
  18. PROZAC [Concomitant]
     Indication: ANXIETY
     Route: 065
     Dates: start: 20030301
  19. PROZAC [Concomitant]
     Indication: DEPRESSION
     Route: 065
     Dates: start: 20030301
  20. CARDIZEM [Concomitant]
     Route: 065
     Dates: start: 20020101

REACTIONS (13)
  - ACCELERATED HYPERTENSION [None]
  - ASTHMA [None]
  - CARDIAC DISORDER [None]
  - CARDIAC FAILURE CONGESTIVE [None]
  - CORONARY ARTERY DISEASE [None]
  - DYSPNOEA [None]
  - HYPOXIA [None]
  - LIMB INJURY [None]
  - LOBAR PNEUMONIA [None]
  - MYOCARDIAL INFARCTION [None]
  - PLEURAL EFFUSION [None]
  - PULMONARY OEDEMA [None]
  - RENAL DISORDER [None]
